FAERS Safety Report 23097946 (Version 2)
Quarter: 2023Q4

REPORT INFORMATION
  Report Type: Spontaneous
  Country: JP (occurrence: JP)
  Receive Date: 20231023
  Receipt Date: 20231108
  Transmission Date: 20240109
  Serious: Yes (Hospitalization, Other)
  Sender: FDA-Public Use
  Company Number: JP-OTSUKA-2023_027404

PATIENT
  Age: 5 Decade
  Sex: Female

DRUGS (6)
  1. REXULTI [Suspect]
     Active Substance: BREXPIPRAZOLE
     Indication: Schizophrenia
     Dosage: 1 MG/DAY
     Route: 048
     Dates: start: 20230810, end: 20230815
  2. REXULTI [Suspect]
     Active Substance: BREXPIPRAZOLE
     Indication: Schizophrenia
     Dosage: 2 MG/DAY
     Route: 048
     Dates: start: 20230816, end: 20230822
  3. RISPERDAL [Suspect]
     Active Substance: RISPERIDONE
     Indication: Product used for unknown indication
     Dosage: UNK
     Route: 048
     Dates: end: 20230822
  4. RISPERDAL [Suspect]
     Active Substance: RISPERIDONE
     Dosage: 6MG/DAY
     Route: 048
  5. RISPERDAL [Suspect]
     Active Substance: RISPERIDONE
     Dosage: 6MG/DAY
     Route: 048
  6. BLONANSERIN [Concomitant]
     Active Substance: BLONANSERIN
     Indication: Product used for unknown indication
     Dosage: 24/DAY
     Route: 048

REACTIONS (4)
  - Hallucination [Recovered/Resolved]
  - Delusion [Recovered/Resolved]
  - Agitation [Recovered/Resolved]
  - Treatment noncompliance [Unknown]

NARRATIVE: CASE EVENT DATE: 20230822
